FAERS Safety Report 4417357-8 (Version None)
Quarter: 2004Q3

REPORT INFORMATION
  Report Type: 
  Country: None (occurrence: None)
  Receive Date: 20040802
  Receipt Date: 20040720
  Transmission Date: 20050211
  Serious: Yes (Other)
  Sender: FDA-Public Use
  Company Number: 2004049476

PATIENT
  Age: 54 Year
  Sex: Male
  Weight: 61.2356 kg

DRUGS (3)
  1. LIPITOR [Suspect]
     Indication: BLOOD CHOLESTEROL INCREASED
     Dosage: 10 MG (10 MG, 1 IN 1 D), ORAL
     Route: 048
  2. ZITHROMAX [Suspect]
     Indication: INFECTION
     Dosage: ORAL
     Route: 048
     Dates: start: 20040615, end: 20040617
  3. ACETYLSALICYLIC ACID SRT [Concomitant]

REACTIONS (19)
  - ASTHENIA [None]
  - ASTHENOPIA [None]
  - CHEST PAIN [None]
  - CONSTIPATION [None]
  - DIFFICULTY IN WALKING [None]
  - DIPLOPIA [None]
  - DRUG INTERACTION [None]
  - DYSURIA [None]
  - FEELING ABNORMAL [None]
  - HEADACHE [None]
  - HYPERHIDROSIS [None]
  - IMPAIRED DRIVING ABILITY [None]
  - INFECTION [None]
  - PHOTOPHOBIA [None]
  - POST PROCEDURAL COMPLICATION [None]
  - PROSTATE CANCER [None]
  - PYREXIA [None]
  - VISION BLURRED [None]
  - VISUAL DISTURBANCE [None]
